FAERS Safety Report 24992733 (Version 1)
Quarter: 2025Q1

REPORT INFORMATION
  Report Type: Report from Study
  Country: CA (occurrence: CA)
  Receive Date: 20250221
  Receipt Date: 20250221
  Transmission Date: 20250408
  Serious: Yes (Other)
  Sender: TEVA
  Company Number: CA-TEVA-VS-3301374

PATIENT
  Age: 50 Year
  Sex: Female

DRUGS (9)
  1. LAMOTRIGINE [Suspect]
     Active Substance: LAMOTRIGINE
     Indication: Product used for unknown indication
     Route: 065
  2. APTIOM [Concomitant]
     Active Substance: ESLICARBAZEPINE ACETATE
     Indication: Product used for unknown indication
  3. XCOPRI [Suspect]
     Active Substance: CENOBAMATE
     Indication: Partial seizures
     Route: 048
  4. XCOPRI [Suspect]
     Active Substance: CENOBAMATE
     Indication: Partial seizures
     Route: 048
  5. XCOPRI [Suspect]
     Active Substance: CENOBAMATE
     Indication: Partial seizures
     Route: 048
  6. XCOPRI [Suspect]
     Active Substance: CENOBAMATE
     Indication: Partial seizures
     Route: 048
  7. XCOPRI [Suspect]
     Active Substance: CENOBAMATE
     Indication: Partial seizures
     Route: 048
  8. XCOPRI [Suspect]
     Active Substance: CENOBAMATE
     Indication: Partial seizures
     Route: 048
  9. DIVALPROEX SODIUM [Concomitant]
     Active Substance: DIVALPROEX SODIUM
     Indication: Product used for unknown indication

REACTIONS (7)
  - Choking [Unknown]
  - Gait disturbance [Unknown]
  - Seizure [Unknown]
  - Seizure [Unknown]
  - Gait disturbance [Unknown]
  - Dysstasia [Unknown]
  - Dizziness [Unknown]
